FAERS Safety Report 19491332 (Version 4)
Quarter: 2022Q1

REPORT INFORMATION
  Report Type: Spontaneous
  Country: JP (occurrence: JP)
  Receive Date: 20210705
  Receipt Date: 20220119
  Transmission Date: 20220424
  Serious: Yes (Death, Hospitalization, Other)
  Sender: FDA-Public Use
  Company Number: JP-BRISTOL-MYERS SQUIBB COMPANY-BMS-2021-064047

PATIENT
  Age: 63 Year
  Sex: Male

DRUGS (1)
  1. OPDIVO [Suspect]
     Active Substance: NIVOLUMAB
     Indication: Oesophageal carcinoma
     Dosage: 240 MILLIGRAM/BODY, Q2WK
     Route: 041
     Dates: start: 20210416

REACTIONS (3)
  - Haemorrhage [Fatal]
  - Arterial rupture [Fatal]
  - Thrombophlebitis migrans [Unknown]

NARRATIVE: CASE EVENT DATE: 20210523
